FAERS Safety Report 23568707 (Version 2)
Quarter: 2024Q1

REPORT INFORMATION
  Report Type: Spontaneous
  Country: KR (occurrence: KR)
  Receive Date: 20240227
  Receipt Date: 20240228
  Transmission Date: 20240410
  Serious: Yes (Death, Hospitalization, Other)
  Sender: FDA-Public Use
  Company Number: KR-SA-SAC20240226000050

PATIENT
  Age: 69 Year
  Sex: Male
  Weight: 53.92 kg

DRUGS (33)
  1. ZALTRAP [Suspect]
     Active Substance: ZIV-AFLIBERCEPT
     Indication: Colorectal cancer
     Dosage: 4 MG/KG, QOW
     Route: 065
     Dates: start: 20220407, end: 20230323
  2. IRINOTECAN HYDROCHLORIDE [Suspect]
     Active Substance: IRINOTECAN HYDROCHLORIDE
     Indication: Colon cancer
     Dosage: 180 MG/M2, QOW
     Dates: start: 20220407, end: 20220811
  3. IRINOTECAN HYDROCHLORIDE [Suspect]
     Active Substance: IRINOTECAN HYDROCHLORIDE
     Dosage: 235 MG, QOW
     Dates: start: 20220830, end: 20230307
  4. IRINOTECAN HYDROCHLORIDE [Suspect]
     Active Substance: IRINOTECAN HYDROCHLORIDE
     Dosage: 220 MG, QOW
     Dates: start: 20230323, end: 20230323
  5. FLUOROURACIL [Suspect]
     Active Substance: FLUOROURACIL
     Indication: Colon cancer
     Dosage: 400 MG/M2, QOW
     Dates: start: 20220407, end: 20220527
  6. FLUOROURACIL [Suspect]
     Active Substance: FLUOROURACIL
     Dosage: 2400 MG/M2, QOW
     Dates: start: 20220407, end: 20220811
  7. FLUOROURACIL [Suspect]
     Active Substance: FLUOROURACIL
     Dosage: 3130 MG, QOW
     Dates: start: 20220830, end: 20230307
  8. FLUOROURACIL [Suspect]
     Active Substance: FLUOROURACIL
     Dosage: 2938 MG, QOW
     Dates: start: 20230323, end: 20230323
  9. TAMSULOSIN HYDROCHLORIDE [Concomitant]
     Active Substance: TAMSULOSIN HYDROCHLORIDE
     Indication: Benign prostatic hyperplasia
     Dosage: 1 DF, QD
     Dates: start: 20210430, end: 20230508
  10. PROPIVERINE HYDROCHLORIDE [Concomitant]
     Active Substance: PROPIVERINE HYDROCHLORIDE
     Indication: Prophylaxis
     Dosage: 1 DF, QD
     Dates: start: 20211209, end: 20230508
  11. PROPIVERINE HYDROCHLORIDE [Concomitant]
     Active Substance: PROPIVERINE HYDROCHLORIDE
  12. ESOMEPRAZOLE SODIUM [Concomitant]
     Active Substance: ESOMEPRAZOLE SODIUM
     Indication: Prophylaxis against gastrointestinal ulcer
     Dosage: 1 DF, QD
     Dates: start: 20210413, end: 20230507
  13. PREGABALIN [Concomitant]
     Active Substance: PREGABALIN
     Indication: Neuropathy peripheral
     Dosage: 1 DF, Q12H
     Dates: start: 20211206
  14. MAGNESIUM OXIDE [Concomitant]
     Active Substance: MAGNESIUM OXIDE
     Indication: Constipation
     Dosage: 2 DF, Q12H
     Dates: start: 20230221, end: 20230329
  15. ACETAMINOPHEN [Concomitant]
     Active Substance: ACETAMINOPHEN
     Indication: Myalgia
     Dosage: 1 DF, Q8H
     Dates: start: 20230323, end: 20230329
  16. ATORVASTATIN CALCIUM [Concomitant]
     Active Substance: ATORVASTATIN CALCIUM
     Indication: Dyslipidaemia
     Dosage: 1 DF, QD
     Dates: end: 20230329
  17. PROPACETAMOL HYDROCHLORIDE [Concomitant]
     Active Substance: PROPACETAMOL HYDROCHLORIDE
     Indication: Pyrexia
     Dosage: UNK, QD
     Dates: start: 20230205, end: 20230205
  18. PROPACETAMOL HYDROCHLORIDE [Concomitant]
     Active Substance: PROPACETAMOL HYDROCHLORIDE
     Dosage: 1 DF, QD
     Dates: start: 20230330, end: 20230501
  19. ROSUVASTATIN CALCIUM [Concomitant]
     Active Substance: ROSUVASTATIN CALCIUM
     Indication: Dyslipidaemia
     Dosage: 1 DF, QD
     Dates: start: 20230331, end: 20230507
  20. ROSUVASTATIN CALCIUM [Concomitant]
     Active Substance: ROSUVASTATIN CALCIUM
     Dosage: 1 UNK
     Route: 065
     Dates: end: 20230329
  21. LEVOFLOXACIN [Concomitant]
     Active Substance: LEVOFLOXACIN
     Indication: Pneumonitis
     Dosage: 1 DF, QD
     Dates: start: 20230406, end: 20230416
  22. LEVOFLOXACIN [Concomitant]
     Active Substance: LEVOFLOXACIN
     Dosage: 1 DF, QD
     Dates: start: 20230508, end: 20230509
  23. MEROPENEM SODIUM CARBONATE [Concomitant]
     Active Substance: MEROPENEM SODIUM CARBONATE
     Indication: Pneumonitis
     Dosage: 2 DF, Q8H
     Dates: start: 20230408, end: 20230420
  24. MEROPENEM SODIUM CARBONATE [Concomitant]
     Active Substance: MEROPENEM SODIUM CARBONATE
     Dosage: 2 DF, Q8H
     Dates: start: 20230508, end: 20230509
  25. ACETYLCYSTEINE [Concomitant]
     Active Substance: ACETYLCYSTEINE
     Indication: Pneumonitis
     Dosage: 1 DF, Q8H
     Dates: start: 20230418, end: 20230509
  26. ERDOSTEINE [Concomitant]
     Active Substance: ERDOSTEINE
     Indication: Pneumonitis
     Dosage: 1 DF, Q8H
     Dates: start: 20230502, end: 20230508
  27. VANCOMYCIN HYDROCHLORIDE [Concomitant]
     Active Substance: VANCOMYCIN HYDROCHLORIDE
     Indication: Enteritis infectious
     Dosage: 1 DF, Q6H
     Dates: start: 20230417, end: 20230423
  28. PIPERACILLIN AND TAZOBACTAM [Concomitant]
     Active Substance: PIPERACILLIN SODIUM\TAZOBACTAM SODIUM
     Indication: Pneumonitis
     Dosage: 1 DF, Q6H
     Dates: start: 20230403, end: 20230404
  29. CEFEPIME HYDROCHLORIDE [Concomitant]
     Active Substance: CEFEPIME HYDROCHLORIDE
     Indication: Pneumonitis
     Dosage: 2 DF, Q8H
     Dates: start: 20230405, end: 20230408
  30. CEFEPIME HYDROCHLORIDE [Concomitant]
     Active Substance: CEFEPIME HYDROCHLORIDE
     Dosage: 2 DF, Q8H
     Dates: start: 20230421, end: 20230508
  31. SULFAMETHOXAZOLE AND TRIMETHOPRIM [Concomitant]
     Active Substance: SULFAMETHOXAZOLE\TRIMETHOPRIM
     Indication: Pneumonitis
     Dosage: 4 DF, Q8H
     Dates: start: 20230410, end: 20230417
  32. TEICOPLANIN [Concomitant]
     Active Substance: TEICOPLANIN
     Indication: Pneumonitis
     Dosage: 1 DF, QD
     Dates: start: 20230411, end: 20230417
  33. AMBROXOL HYDROCHLORIDE [Concomitant]
     Active Substance: AMBROXOL HYDROCHLORIDE
     Indication: Pneumonia
     Dosage: 1 DF, Q8H
     Route: 065
     Dates: start: 20220909

REACTIONS (5)
  - Pneumonitis [Fatal]
  - Cholecystitis [Recovering/Resolving]
  - Cholangitis acute [Recovered/Resolved]
  - Enteritis infectious [Recovered/Resolved]
  - Pneumonia [Recovered/Resolved]

NARRATIVE: CASE EVENT DATE: 20220909
